FAERS Safety Report 5056425-7 (Version None)
Quarter: 2006Q3

REPORT INFORMATION
  Report Type: 
  Country: None (occurrence: None)
  Receive Date: 20060717
  Receipt Date: 20060707
  Transmission Date: 20061208
  Serious: Yes (Hospitalization)
  Sender: FDA-Public Use
  Company Number: 2006084624

PATIENT
  Age: 54 Year
  Sex: Female

DRUGS (3)
  1. MINOXIDIL [Suspect]
     Indication: FEMALE PATTERN BALDNESS
     Dosage: 1 ML, TOPICAL
     Route: 061
     Dates: start: 20050701
  2. AMLODIPINE BESYLATE [Concomitant]
  3. ISOSORBIDE (ISOSORBIDE) [Concomitant]

REACTIONS (1)
  - DEAFNESS UNILATERAL [None]
